FAERS Safety Report 6609200-3 (Version None)
Quarter: 2010Q1

REPORT INFORMATION
  Report Type: 
  Country: None (occurrence: None)
  Receive Date: 20100301
  Receipt Date: 20100217
  Transmission Date: 20100710
  Serious: Yes (Death, Hospitalization)
  Sender: FDA-Public Use
  Company Number: HU-AMGEN-US395619

PATIENT
  Age: 76 Year
  Sex: Female

DRUGS (9)
  1. ENBREL [Suspect]
     Indication: RHEUMATOID ARTHRITIS
     Route: 058
     Dates: start: 20090513, end: 20090918
  2. OLICARD [Concomitant]
     Indication: MYOCARDIAL ISCHAEMIA
     Route: 065
  3. METHYLPREDNISOLONE [Concomitant]
     Indication: RHEUMATOID ARTHRITIS
     Dosage: 8MG, FREQUENCY UNSPECIFIED
     Route: 065
  4. CALCIUM CARBONATE [Concomitant]
     Dosage: 1X700MG
     Route: 065
  5. QUAMATEL [Concomitant]
     Dosage: 20 MG, FREQUENCY UNSPECIFIED
     Route: 065
  6. PIRACETAM [Concomitant]
     Dosage: 2X1
     Route: 065
  7. ALPHA D3 [Concomitant]
     Dosage: 1X0.5UG
     Route: 065
  8. SALAZOPYRIN [Concomitant]
     Indication: RHEUMATOID ARTHRITIS
     Route: 048
     Dates: start: 20090312
  9. FUROSEMIDE [Concomitant]
     Indication: MYOCARDIAL ISCHAEMIA
     Dosage: 4 MG, FREQUENCY UNSPECIFIED
     Route: 065

REACTIONS (3)
  - ADENOCARCINOMA PANCREAS [None]
  - CIRCULATORY COLLAPSE [None]
  - RESPIRATORY FAILURE [None]
